FAERS Safety Report 18414427 (Version 1)
Quarter: 2020Q4

REPORT INFORMATION
  Report Type: Spontaneous
  Country: AU (occurrence: AU)
  Receive Date: 20201022
  Receipt Date: 20201022
  Transmission Date: 20210114
  Serious: Yes (Other)
  Sender: FDA-Public Use
  Company Number: NVSC2020AU280864

PATIENT
  Age: 1 Decade
  Sex: Female

DRUGS (5)
  1. RITUXIMAB. [Suspect]
     Active Substance: RITUXIMAB
     Indication: FOETAL EXPOSURE DURING PREGNANCY
     Dosage: UNK
     Route: 065
  2. DOXORUBICINE HYDROCHLORIDE [Suspect]
     Active Substance: DOXORUBICIN HYDROCHLORIDE
     Indication: FOETAL EXPOSURE DURING PREGNANCY
     Dosage: UNK
     Route: 065
  3. VINCRISTINE SULPHATE [Suspect]
     Active Substance: VINCRISTINE SULFATE
     Indication: FOETAL EXPOSURE DURING PREGNANCY
     Dosage: UNK
     Route: 065
  4. ENDOXAN [Suspect]
     Active Substance: CYCLOPHOSPHAMIDE
     Indication: FOETAL EXPOSURE DURING PREGNANCY
     Dosage: UNK
     Route: 065
  5. PREDNISONE. [Suspect]
     Active Substance: PREDNISONE
     Indication: FOETAL EXPOSURE DURING PREGNANCY
     Dosage: UNK
     Route: 065

REACTIONS (5)
  - Foetal exposure during pregnancy [Unknown]
  - Secondary immunodeficiency [Unknown]
  - Pneumocystis jirovecii pneumonia [Unknown]
  - Premature baby [Unknown]
  - Lymphopenia [Unknown]
